FAERS Safety Report 7911485-8 (Version None)
Quarter: 2011Q4

REPORT INFORMATION
  Report Type: 
  Country: None (occurrence: None)
  Receive Date: 20111114
  Receipt Date: 20111107
  Transmission Date: 20120403
  Serious: Yes (Death)
  Sender: FDA-Public Use
  Company Number: GB-US-EMD SERONO, INC.-7048082

PATIENT
  Sex: Male

DRUGS (4)
  1. INDOMETHACIN [Concomitant]
  2. REBIF [Suspect]
     Indication: MULTIPLE SCLEROSIS
     Dates: start: 20040920, end: 20101206
  3. CARBAMAZEPINE [Concomitant]
  4. MARCOL [Concomitant]

REACTIONS (2)
  - CARDIAC ARREST [None]
  - PANCREATITIS HAEMORRHAGIC [None]
